FAERS Safety Report 8225016-9 (Version None)
Quarter: 2012Q1

REPORT INFORMATION
  Report Type: 
  Country: None (occurrence: None)
  Receive Date: 20120321
  Receipt Date: 20120315
  Transmission Date: 20120608
  Serious: Yes (Hospitalization)
  Sender: FDA-Public Use
  Company Number: US-GILEAD-2012-0051706

PATIENT
  Sex: Female

DRUGS (3)
  1. LETAIRIS [Suspect]
     Indication: PULMONARY HYPERTENSION
     Dosage: 10 MG, UNK
     Route: 048
     Dates: start: 20120130
  2. LETAIRIS [Suspect]
     Indication: SYSTEMIC SCLEROSIS
  3. VENTAVIS [Concomitant]
     Dosage: UNK
     Dates: start: 20111207

REACTIONS (1)
  - SYNCOPE [None]
